FAERS Safety Report 23310277 (Version 1)
Quarter: 2023Q4

REPORT INFORMATION
  Report Type: Spontaneous
  Country: US (occurrence: None)
  Receive Date: 20231218
  Receipt Date: 20231218
  Transmission Date: 20240110
  Serious: No
  Sender: FDA-Public Use
  Company Number: None

PATIENT
  Sex: Female

DRUGS (1)
  1. FORTEO [Suspect]
     Active Substance: TERIPARATIDE
     Indication: Osteoporosis
     Dosage: OTHER FREQUENCY : NIGHTDAILY;?
     Route: 042
     Dates: start: 202309

REACTIONS (4)
  - Pathological fracture [None]
  - Headache [None]
  - Fatigue [None]
  - Arthralgia [None]
